FAERS Safety Report 7744107-X (Version None)
Quarter: 2011Q3

REPORT INFORMATION
  Report Type: 
  Country: None (occurrence: None)
  Receive Date: 20110912
  Receipt Date: 20110831
  Transmission Date: 20111222
  Serious: Yes (Hospitalization)
  Sender: FDA-Public Use
  Company Number: US-BAYER-2011-009473

PATIENT
  Age: 18 Year
  Sex: Female
  Weight: 58.957 kg

DRUGS (2)
  1. YAZ [Suspect]
     Indication: ACNE
     Dosage: UNK
     Dates: start: 20070801, end: 20080701
  2. YAZ [Suspect]
     Dosage: UNK
     Dates: start: 20081001, end: 20090201

REACTIONS (5)
  - ABDOMINAL PAIN [None]
  - VOMITING [None]
  - NAUSEA [None]
  - GALLBLADDER DISORDER [None]
  - PAIN [None]
